FAERS Safety Report 12568378 (Version 1)
Quarter: 2016Q3

REPORT INFORMATION
  Report Type: Spontaneous
  Country: CA (occurrence: CA)
  Receive Date: 20160718
  Receipt Date: 20160718
  Transmission Date: 20161109
  Serious: Yes (Disabling)
  Sender: FDA-Public Use
  Company Number: CA-BAUSCH-BL-2016-016225

PATIENT
  Age: 21 Year
  Sex: Male
  Weight: 65 kg

DRUGS (1)
  1. RETISERT [Suspect]
     Active Substance: FLUOCINOLONE ACETONIDE
     Indication: UVEITIS
     Route: 047

REACTIONS (6)
  - Implant site extravasation [Not Recovered/Not Resolved]
  - Disease recurrence [Not Recovered/Not Resolved]
  - Device issue [Not Recovered/Not Resolved]
  - Hypotony of eye [Not Recovered/Not Resolved]
  - Blindness unilateral [Not Recovered/Not Resolved]
  - Uveitis [Not Recovered/Not Resolved]
